FAERS Safety Report 6403490-8 (Version None)
Quarter: 2009Q4

REPORT INFORMATION
  Report Type: 
  Country: None (occurrence: None)
  Receive Date: 20091015
  Receipt Date: 20091015
  Transmission Date: 20100525
  Serious: Yes (Other)
  Sender: FDA-Public Use
  Company Number: None

PATIENT
  Age: 11 Year
  Sex: Female
  Weight: 39.3 kg

DRUGS (1)
  1. TAMIFLU [Suspect]
     Indication: INFLUENZA
     Dosage: 75MG BID PO,  ONE DOSE
     Route: 048
     Dates: start: 20091014, end: 20091014

REACTIONS (4)
  - DISORIENTATION [None]
  - MUSCULOSKELETAL STIFFNESS [None]
  - UNRESPONSIVE TO STIMULI [None]
  - VOMITING [None]
